FAERS Safety Report 9593116 (Version 1)
Quarter: 2013Q3

REPORT INFORMATION
  Report Type: Spontaneous
  Country: US (occurrence: None)
  Receive Date: 20130930
  Receipt Date: 20130930
  Transmission Date: 20140515
  Serious: Yes (Other)
  Sender: FDA-Public Use
  Company Number: 1000046426

PATIENT
  Age: 24 Year
  Sex: Male

DRUGS (4)
  1. LINZESS [Suspect]
     Indication: CONSTIPATION
     Dosage: 145 MCG, 1 IN 1 D
     Route: 048
     Dates: start: 20130701, end: 20130701
  2. METHADONE [Concomitant]
  3. ZOLPIDEM [Concomitant]
  4. HALOBETASOL [Concomitant]

REACTIONS (2)
  - Amnesia [None]
  - Gait disturbance [None]
